FAERS Safety Report 24999986 (Version 2)
Quarter: 2025Q1

REPORT INFORMATION
  Report Type: Spontaneous
  Country: US (occurrence: US)
  Receive Date: 20250222
  Receipt Date: 20250301
  Transmission Date: 20250409
  Serious: Yes (Hospitalization)
  Sender: SANOFI AVENTIS
  Company Number: US-SA-2025SA049757

PATIENT
  Age: 69 Year
  Sex: Male

DRUGS (3)
  1. KEVZARA [Suspect]
     Active Substance: SARILUMAB
     Indication: Rheumatoid arthritis
     Dosage: 200 MG, QOW
     Route: 058
     Dates: start: 202501
  2. KEVZARA [Suspect]
     Active Substance: SARILUMAB
     Indication: Arthritis
  3. ENBREL [Concomitant]
     Active Substance: ETANERCEPT

REACTIONS (5)
  - Hospitalisation [Unknown]
  - Pain [Unknown]
  - Movement disorder [Unknown]
  - Gait inability [Unknown]
  - Loss of personal independence in daily activities [Unknown]

NARRATIVE: CASE EVENT DATE: 20250101
